FAERS Safety Report 5545254-3 (Version None)
Quarter: 2007Q4

REPORT INFORMATION
  Report Type: 
  Country: None (occurrence: None)
  Receive Date: 20071123
  Receipt Date: 20070821
  Transmission Date: 20080405
  Serious: Yes (Hospitalization, Other)
  Sender: FDA-Public Use
  Company Number: 40095

PATIENT
  Age: 77 Year
  Sex: Female

DRUGS (1)
  1. LEUCOVORIN CALCIUM [Suspect]
     Indication: COLORECTAL CANCER METASTATIC
     Dosage: 712 MG INTRAVENOUSLY EVERY 2 W
     Route: 042
     Dates: start: 20070223, end: 20070727

REACTIONS (3)
  - ANOREXIA [None]
  - ASTHENIA [None]
  - DEHYDRATION [None]
